FAERS Safety Report 7425604-3 (Version None)
Quarter: 2011Q2

REPORT INFORMATION
  Report Type: 
  Country: None (occurrence: None)
  Receive Date: 20110420
  Receipt Date: 20100525
  Transmission Date: 20111010
  Serious: No
  Sender: FDA-Public Use
  Company Number: US-ASTRAZENECA-2010SE24188

PATIENT
  Age: 25 Year
  Sex: Male

DRUGS (2)
  1. CASODEX [Suspect]
     Route: 048
  2. KAPIDEX [Suspect]
     Indication: GASTROOESOPHAGEAL REFLUX DISEASE
     Route: 048

REACTIONS (4)
  - DRUG DISPENSING ERROR [None]
  - MOOD ALTERED [None]
  - BREAST TENDERNESS [None]
  - DRUG NAME CONFUSION [None]
